FAERS Safety Report 8452289-X (Version None)
Quarter: 2012Q2

REPORT INFORMATION
  Report Type: 
  Country: None (occurrence: None)
  Receive Date: 20120620
  Receipt Date: 20120612
  Transmission Date: 20120825
  Serious: Yes (Hospitalization)
  Sender: FDA-Public Use
  Company Number: CA-ELI_LILLY_AND_COMPANY-CA201206004523

PATIENT
  Age: 62 Year
  Sex: Female

DRUGS (3)
  1. CALCIUM [Concomitant]
  2. VITAMIN D [Concomitant]
  3. FORTEO [Suspect]
     Indication: OSTEOPOROSIS
     Dosage: 20 UG, QD
     Route: 058
     Dates: start: 20110110, end: 20120428

REACTIONS (3)
  - UPPER LIMB FRACTURE [None]
  - INTENTIONAL DRUG MISUSE [None]
  - FALL [None]
